FAERS Safety Report 25556753 (Version 1)
Quarter: 2025Q3

REPORT INFORMATION
  Report Type: Report from Study
  Country: IN (occurrence: IN)
  Receive Date: 20250715
  Receipt Date: 20250715
  Transmission Date: 20251021
  Serious: Yes (Other)
  Sender: DAIICHI
  Company Number: IN-AstraZeneca-CH-00904291A

PATIENT
  Age: 40 Year
  Sex: Male
  Weight: 59 kg

DRUGS (1)
  1. ENHERTU [Suspect]
     Active Substance: FAM-TRASTUZUMAB DERUXTECAN-NXKI
     Indication: Product used for unknown indication
     Dosage: 300 ML, ONCE EVERY 3 WK
     Route: 040
     Dates: start: 20250418

REACTIONS (9)
  - Bladder discomfort [Unknown]
  - Gastrooesophageal reflux disease [Unknown]
  - Constipation [Unknown]
  - Asthenia [Unknown]
  - Nausea [Unknown]
  - Pain in jaw [Unknown]
  - Back pain [Unknown]
  - Anxiety [Unknown]
  - Frustration tolerance decreased [Unknown]
